FAERS Safety Report 8501674-6 (Version None)
Quarter: 2012Q3

REPORT INFORMATION
  Report Type: 
  Country: None (occurrence: None)
  Receive Date: 20120711
  Receipt Date: 20120703
  Transmission Date: 20120928
  Serious: Yes (Hospitalization)
  Sender: FDA-Public Use
  Company Number: US-BIOGENIDEC-2012BI020630

PATIENT
  Sex: Female

DRUGS (1)
  1. AVONEX [Suspect]
     Indication: MULTIPLE SCLEROSIS
     Route: 030
     Dates: start: 20110531

REACTIONS (5)
  - HYPOAESTHESIA [None]
  - CHEST PAIN [None]
  - PAIN IN EXTREMITY [None]
  - OSTECTOMY [None]
  - MULTIPLE SCLEROSIS RELAPSE [None]
